FAERS Safety Report 10425480 (Version 2)
Quarter: 2014Q3

REPORT INFORMATION
  Report Type: Spontaneous
  Country: US (occurrence: US)
  Receive Date: 20140902
  Receipt Date: 20140924
  Transmission Date: 20150326
  Serious: No
  Sender: FDA-Public Use
  Company Number: US-TEVA-505727USA

PATIENT
  Age: 31 Year
  Sex: Female
  Weight: 57.2 kg

DRUGS (1)
  1. PARAGARD T380A [Suspect]
     Active Substance: COPPER
     Indication: CONTRACEPTION
     Route: 015
     Dates: start: 20121129, end: 20140809

REACTIONS (5)
  - Pelvic pain [Recovered/Resolved]
  - Device expulsion [Recovered/Resolved]
  - Pregnancy on contraceptive [Not Recovered/Not Resolved]
  - Vulvovaginal burning sensation [Recovered/Resolved]
  - Menstruation delayed [Not Recovered/Not Resolved]

NARRATIVE: CASE EVENT DATE: 201309
